FAERS Safety Report 23435891 (Version 1)
Quarter: 2024Q1

REPORT INFORMATION
  Report Type: Spontaneous
  Country: IE (occurrence: IE)
  Receive Date: 20240124
  Receipt Date: 20240124
  Transmission Date: 20240410
  Serious: Yes (Hospitalization, Other)
  Sender: FDA-Public Use
  Company Number: IE-TEVA-VS-3148412

PATIENT
  Age: 54 Year

DRUGS (2)
  1. DEXAMETHASONE [Suspect]
     Active Substance: DEXAMETHASONE
     Indication: Nausea
     Route: 065
  2. AVELUMAB [Concomitant]
     Active Substance: AVELUMAB
     Indication: Bladder cancer stage III
     Dosage: FROM PREVIOUS 12 MONTHS
     Route: 065
     Dates: start: 2021

REACTIONS (2)
  - Acanthosis nigricans [Not Recovered/Not Resolved]
  - Secondary adrenocortical insufficiency [Unknown]
